FAERS Safety Report 19747110 (Version 1)
Quarter: 2021Q3

REPORT INFORMATION
  Report Type: Report from Study
  Country: GR (occurrence: GR)
  Receive Date: 20210825
  Receipt Date: 20210825
  Transmission Date: 20211014
  Serious: Yes (Hospitalization)
  Sender: FDA-Public Use
  Company Number: GR-ELI_LILLY_AND_COMPANY-GR202108001669

PATIENT
  Age: 45 Year
  Sex: Male

DRUGS (3)
  1. COPALIA [Concomitant]
     Active Substance: AMLODIPINE BESYLATE\VALSARTAN
     Indication: BLOOD PRESSURE ABNORMAL
     Dosage: 1 DOSAGE FORM, DAILY
  2. FISIOTENS [Concomitant]
     Active Substance: MOXONIDINE
     Indication: HYPERTENSION
     Dosage: UNK, PRN
  3. TRULICITY [Suspect]
     Active Substance: DULAGLUTIDE
     Indication: DIABETES MELLITUS
     Dosage: 0.75 MG, WEEKLY (1/W)
     Route: 058
     Dates: start: 20200706, end: 20200706

REACTIONS (5)
  - Dehydration [Unknown]
  - Diarrhoea [Recovered/Resolved]
  - Acute kidney injury [Recovered/Resolved]
  - Decreased appetite [Unknown]
  - Flatulence [Recovered/Resolved]

NARRATIVE: CASE EVENT DATE: 202007
